FAERS Safety Report 4450426-5 (Version None)
Quarter: 2004Q3

REPORT INFORMATION
  Report Type: 
  Country: None (occurrence: None)
  Receive Date: 20040914
  Receipt Date: 20040830
  Transmission Date: 20050211
  Serious: Yes (Hospitalization)
  Sender: FDA-Public Use
  Company Number: B01200401462

PATIENT
  Age: 77 Year
  Sex: Male

DRUGS (7)
  1. CLOPIDOGREL TABLET 75MG [Suspect]
     Indication: ISCHAEMIC HEART DISEASE PROPHYLAXIS
     Dosage: 75 MG QD
     Route: 048
     Dates: start: 20030101, end: 20040728
  2. ACETYLSALICYLIC ACID SRT [Concomitant]
  3. FOSINOPRIL SODIUM [Concomitant]
  4. OMEPRAZOLE [Concomitant]
  5. PRAZOSIN HCL [Concomitant]
  6. ALBUTEROL [Concomitant]
  7. FLIXOTIDE (FLUTICASONE PROPIONATE) [Concomitant]

REACTIONS (8)
  - CONSTIPATION [None]
  - GASTRITIS EROSIVE [None]
  - HAEMATEMESIS [None]
  - HAEMOGLOBIN DECREASED [None]
  - NAUSEA [None]
  - OESOPHAGITIS [None]
  - REFLUX OESOPHAGITIS [None]
  - URINARY TRACT INFECTION [None]
